FAERS Safety Report 8255243-6 (Version None)
Quarter: 2012Q1

REPORT INFORMATION
  Report Type: 
  Country: None (occurrence: None)
  Receive Date: 20120322
  Receipt Date: 20111223
  Transmission Date: 20120608
  Serious: Yes (Hospitalization)
  Sender: FDA-Public Use
  Company Number: UTC-013914

PATIENT
  Age: 56 Year
  Sex: Female
  Weight: 53.64 kg

DRUGS (6)
  1. DIURETICS (DIURETICS) [Concomitant]
  2. TYVASO [Suspect]
     Indication: PULMONARY ARTERIAL HYPERTENSION
     Dosage: 216 MCG (54 MCG, 4 IN 1 D) INHALATION
     Route: 055
     Dates: start: 20110713
  3. OXYGEN (OXYGEN) [Concomitant]
  4. TRACLEER [Concomitant]
  5. DIGOXIN [Concomitant]
  6. REVATIO [Concomitant]

REACTIONS (1)
  - OEDEMA PERIPHERAL [None]
